FAERS Safety Report 11832074 (Version 4)
Quarter: 2016Q3

REPORT INFORMATION
  Report Type: Report from Study
  Country: US (occurrence: US)
  Receive Date: 20151214
  Receipt Date: 20160719
  Transmission Date: 20161109
  Serious: Yes (Hospitalization)
  Sender: FDA-Public Use
  Company Number: PHHY2015US134209

PATIENT
  Age: 38 Year
  Sex: Female
  Weight: 92.8 kg

DRUGS (41)
  1. SYNTHROID [Concomitant]
     Active Substance: LEVOTHYROXINE SODIUM
     Indication: HYPOTHYROIDISM
     Dosage: 25 UG, Q, BEFORE BREAKFAST
     Route: 048
     Dates: start: 20150106
  2. ALDACTONE [Concomitant]
     Active Substance: SPIRONOLACTONE
     Indication: PRODUCT USED FOR UNKNOWN INDICATION
     Dosage: 25 MG, QD
     Route: 048
  3. PERCOCET [Concomitant]
     Active Substance: ACETAMINOPHEN\OXYCODONE HYDROCHLORIDE
     Indication: PRODUCT USED FOR UNKNOWN INDICATION
     Dosage: 7.5 TO 325 MG TABLET (1 TABLET) ONCE
     Route: 048
  4. ALPON//ALPRAZOLAM [Concomitant]
     Indication: PRODUCT USED FOR UNKNOWN INDICATION
     Dosage: 0.5 MG, TID, PRN
     Route: 048
  5. MS CONTIN [Concomitant]
     Active Substance: MORPHINE SULFATE
     Indication: PRODUCT USED FOR UNKNOWN INDICATION
     Dosage: 15 MG, EVERY 8 HRS PRN
     Route: 048
  6. MORPHINE [Concomitant]
     Active Substance: MORPHINE
     Indication: PRODUCT USED FOR UNKNOWN INDICATION
     Dosage: 1 MG, EVERY 4 HRS, PRN
     Route: 042
  7. NOVOLOG [Concomitant]
     Active Substance: INSULIN ASPART
     Indication: DIABETES MELLITUS
     Dosage: UNK
     Route: 065
     Dates: start: 20150106
  8. XANAX [Concomitant]
     Active Substance: ALPRAZOLAM
     Indication: ANXIETY
     Dosage: UNK
     Route: 065
     Dates: start: 20150128
  9. TENORMIN [Concomitant]
     Active Substance: ATENOLOL
     Indication: PRODUCT USED FOR UNKNOWN INDICATION
     Dosage: 25 MG, BID
     Route: 048
  10. NACL [Concomitant]
     Active Substance: SODIUM CHLORIDE
     Indication: PRODUCT USED FOR UNKNOWN INDICATION
     Dosage: 0.9% NACL FLUSH BAG, PRN
     Route: 042
  11. TYLENOL [Concomitant]
     Active Substance: ACETAMINOPHEN
     Indication: PRODUCT USED FOR UNKNOWN INDICATION
     Dosage: 650 MG, ONCE/SINGLE, PRN
     Route: 048
  12. ALBUTEROL. [Concomitant]
     Active Substance: ALBUTEROL
     Indication: PRODUCT USED FOR UNKNOWN INDICATION
     Dosage: 0.5% NEBULIZER SOLUTION,2.5 MG, EVERY 6 HRS, PRN
     Route: 055
  13. OXYCODONE [Concomitant]
     Active Substance: OXYCODONE
     Indication: PRODUCT USED FOR UNKNOWN INDICATION
     Dosage: 5 MG, EVERY 8 HRS, PRN
     Route: 048
  14. NO TREATMENT RECEIVED [Suspect]
     Active Substance: UNSPECIFIED INGREDIENT
     Indication: PRODUCT USED FOR UNKNOWN INDICATION
     Dosage: UNK
     Route: 065
  15. PROTONIX [Concomitant]
     Active Substance: PANTOPRAZOLE SODIUM
     Indication: PRODUCT USED FOR UNKNOWN INDICATION
     Dosage: 40 MG, QD
     Route: 048
  16. COUMADIN [Concomitant]
     Active Substance: WARFARIN SODIUM
     Indication: DEEP VEIN THROMBOSIS
     Dosage: 5 MG, ONCE/SINGLE
     Route: 048
  17. MORPHINE [Concomitant]
     Active Substance: MORPHINE
     Indication: PRODUCT USED FOR UNKNOWN INDICATION
     Dosage: 15 MG, EVERY 8 HOURS, PRN
     Route: 048
  18. ESCITALOPRAM [Concomitant]
     Active Substance: ESCITALOPRAM OXALATE
     Indication: PRODUCT USED FOR UNKNOWN INDICATION
     Dosage: 20 MG, QD
     Route: 048
  19. REQUIP [Concomitant]
     Active Substance: ROPINIROLE HYDROCHLORIDE
     Indication: PRODUCT USED FOR UNKNOWN INDICATION
     Dosage: 1 MG, AT BED TIME
     Route: 048
  20. COUMADIN [Concomitant]
     Active Substance: WARFARIN SODIUM
     Dosage: 3 MG, ONCE/SINGLE
     Route: 048
  21. KLOR-CON [Concomitant]
     Active Substance: POTASSIUM CHLORIDE
     Indication: PRODUCT USED FOR UNKNOWN INDICATION
     Dosage: 40 MEQ, ONCE/SINGLE
     Route: 048
  22. MILK OF MAGNESIA [Concomitant]
     Active Substance: MAGNESIUM HYDROXIDE
     Indication: PRODUCT USED FOR UNKNOWN INDICATION
     Dosage: 15 ML, PRN
     Route: 048
  23. PHENERGAN//PROMETHAZINE [Concomitant]
     Dosage: 25 MG, EVERY 6 HRS, PRN
     Route: 048
  24. COUMADIN [Concomitant]
     Active Substance: WARFARIN SODIUM
     Dosage: 7.5 MG, ONCE/SINGLE
     Route: 048
  25. HYTONE [Concomitant]
     Active Substance: HYDROCORTISONE
     Indication: PRODUCT USED FOR UNKNOWN INDICATION
     Dosage: 4 DF,1% CREAM,  QD
     Route: 061
  26. NACL [Concomitant]
     Active Substance: SODIUM CHLORIDE
     Dosage: INJECTION 2-10 ML, INTRACATHETER, PRN
     Route: 065
  27. IPRATROPIUM [Concomitant]
     Active Substance: IPRATROPIUM
     Indication: PRODUCT USED FOR UNKNOWN INDICATION
     Dosage: 0.5 MG,NEBULIZER SOLUTION, EVERY 6 HRS PRN
     Route: 055
  28. VENOFER [Concomitant]
     Active Substance: IRON SUCROSE
     Indication: SERUM FERRITIN DECREASED
     Dosage: UNK
     Route: 065
  29. TECFIDERA [Concomitant]
     Active Substance: DIMETHYL FUMARATE
     Indication: MULTIPLE SCLEROSIS
     Dosage: UNK
     Route: 065
     Dates: start: 20150112
  30. PHENERGAN//PROMETHAZINE [Concomitant]
     Indication: PRODUCT USED FOR UNKNOWN INDICATION
     Dosage: 25 MG, EVERY 4 HRS, PRN
     Route: 048
  31. LIORESAL [Concomitant]
     Active Substance: BACLOFEN
     Indication: MULTIPLE SCLEROSIS
     Dosage: 10 MG, BID
     Route: 048
     Dates: start: 20131213
  32. COLACE [Concomitant]
     Active Substance: DOCUSATE SODIUM
     Indication: PRODUCT USED FOR UNKNOWN INDICATION
     Dosage: 100 MG, BID
     Route: 048
  33. LASIX [Concomitant]
     Active Substance: FUROSEMIDE
     Indication: PRODUCT USED FOR UNKNOWN INDICATION
     Dosage: 40 MG, QD
     Route: 048
  34. KEPPRA [Concomitant]
     Active Substance: LEVETIRACETAM
     Indication: PRODUCT USED FOR UNKNOWN INDICATION
     Dosage: 500 MG, BID
     Route: 048
  35. MELATONIN [Concomitant]
     Active Substance: MELATONIN
     Indication: PRODUCT USED FOR UNKNOWN INDICATION
     Dosage: 3 MG, AT BED TIME
     Route: 048
  36. BENADRYL [Concomitant]
     Active Substance: DIPHENHYDRAMINE HYDROCHLORIDE
     Indication: PRODUCT USED FOR UNKNOWN INDICATION
     Dosage: 25 MG, UNK
     Route: 042
  37. NITROSTAT [Concomitant]
     Active Substance: NITROGLYCERIN
     Indication: PRODUCT USED FOR UNKNOWN INDICATION
     Dosage: 0.4 MG, EVERY 5 MINUTES (PRN)
     Route: 060
  38. NEURONTIN [Concomitant]
     Active Substance: GABAPENTIN
     Indication: MULTIPLE SCLEROSIS
     Dosage: 300 MG, TID
     Route: 048
     Dates: start: 20150101
  39. LEXAPRO [Concomitant]
     Active Substance: ESCITALOPRAM OXALATE
     Indication: DEPRESSION
     Dosage: 20 MG, QD
     Route: 048
  40. NYAMYC [Concomitant]
     Active Substance: NYSTATIN
     Indication: SKIN INFECTION
     Dosage: UNK
     Route: 065
     Dates: start: 20150107, end: 20150117
  41. DITROPAN [Concomitant]
     Active Substance: OXYBUTYNIN CHLORIDE
     Indication: PRODUCT USED FOR UNKNOWN INDICATION
     Dosage: 5 MG, TID
     Route: 048

REACTIONS (12)
  - Speech disorder [Unknown]
  - Blood pressure decreased [Unknown]
  - Blood urea decreased [Unknown]
  - Haematocrit decreased [Unknown]
  - White blood cell count decreased [Unknown]
  - Multiple sclerosis [Unknown]
  - Dysphonia [Recovering/Resolving]
  - Non-cardiac chest pain [Recovered/Resolved]
  - Blood calcium decreased [Unknown]
  - Haemoglobin decreased [Unknown]
  - Blood creatinine decreased [Unknown]
  - Rash [Recovered/Resolved]

NARRATIVE: CASE EVENT DATE: 20150704
